FAERS Safety Report 7645057-X (Version None)
Quarter: 2011Q3

REPORT INFORMATION
  Report Type: 
  Country: None (occurrence: None)
  Receive Date: 20110729
  Receipt Date: 20110726
  Transmission Date: 20111222
  Serious: Yes (Hospitalization, Other)
  Sender: FDA-Public Use
  Company Number: KR-GLAXOSMITHKLINE-R0018132A

PATIENT
  Sex: Male
  Weight: 64 kg

DRUGS (5)
  1. BLINDED VACCINE [Suspect]
     Indication: NON-SMALL CELL LUNG CANCER
     Route: 030
     Dates: start: 20100713, end: 20100713
  2. NICOTINIC ACID [Suspect]
     Indication: DIABETES MELLITUS
     Dosage: 500MG PER DAY
     Route: 048
     Dates: start: 20070101
  3. ALPHA LIPOIC ACID [Suspect]
     Indication: DIABETES MELLITUS
     Dosage: 600MG PER DAY
     Route: 048
     Dates: start: 20070101
  4. AVANDARYL [Suspect]
     Indication: DIABETES MELLITUS
     Dosage: 4MG PER DAY
     Route: 048
     Dates: start: 20070101
  5. METFORMIN HCL [Suspect]
     Indication: DIABETES MELLITUS
     Dosage: 1000MG PER DAY
     Route: 048
     Dates: start: 20070101

REACTIONS (1)
  - RENAL FAILURE ACUTE [None]
